FAERS Safety Report 9742602 (Version 2)
Quarter: 2015Q3

REPORT INFORMATION
  Report Type: Spontaneous
  Country: US (occurrence: US)
  Receive Date: 20131210
  Receipt Date: 20150804
  Transmission Date: 20151125
  Serious: No
  Sender: FDA-Public Use
  Company Number: US-GILEAD-2009-0024607

PATIENT
  Age: 73 Year
  Sex: Female
  Weight: 84.82 kg

DRUGS (16)
  1. LETAIRIS [Suspect]
     Active Substance: AMBRISENTAN
     Indication: PULMONARY ARTERIAL HYPERTENSION
     Route: 048
     Dates: start: 20081219
  2. REVATIO [Concomitant]
     Active Substance: SILDENAFIL CITRATE
  3. MULTIVITAMIN [Concomitant]
     Active Substance: VITAMINS
  4. COUMADIN [Concomitant]
     Active Substance: WARFARIN SODIUM
  5. ALEVE [Concomitant]
     Active Substance: NAPROXEN SODIUM
  6. LEVOXYL [Concomitant]
     Active Substance: LEVOTHYROXINE SODIUM
  7. VIAGRA [Concomitant]
     Active Substance: SILDENAFIL CITRATE
  8. LANOXIN [Concomitant]
     Active Substance: DIGOXIN
  9. AMLODIPINE [Concomitant]
     Active Substance: AMLODIPINE BESYLATE
  10. DIOVAN [Concomitant]
     Active Substance: VALSARTAN
  11. NEXIUM [Concomitant]
     Active Substance: ESOMEPRAZOLE MAGNESIUM
  12. POTASSIUM CL [Concomitant]
     Active Substance: POTASSIUM CHLORIDE
  13. VITAMIN D COMPLEX [Concomitant]
  14. LEVAQUIN [Concomitant]
     Active Substance: LEVOFLOXACIN
  15. ASPIRIN. [Concomitant]
     Active Substance: ASPIRIN
  16. REGLAN [Concomitant]
     Active Substance: METOCLOPRAMIDE HYDROCHLORIDE

REACTIONS (3)
  - Balance disorder [Unknown]
  - Dizziness [Unknown]
  - Hypotension [Unknown]
